FAERS Safety Report 25181099 (Version 1)
Quarter: 2025Q2

REPORT INFORMATION
  Report Type: Spontaneous
  Country: US (occurrence: US)
  Receive Date: 20250410
  Receipt Date: 20250410
  Transmission Date: 20250716
  Serious: No
  Sender: AJANTA PHARMA
  Company Number: US-AJANTA-2025AJA00045

PATIENT
  Sex: Male

DRUGS (1)
  1. CHOLESTYRAMINE [Suspect]
     Active Substance: CHOLESTYRAMINE
     Indication: Product used for unknown indication
     Route: 048
     Dates: start: 202503

REACTIONS (2)
  - Abdominal distension [Unknown]
  - Regurgitation [Unknown]

NARRATIVE: CASE EVENT DATE: 20250101
